FAERS Safety Report 23593118 (Version 1)
Quarter: 2024Q1

REPORT INFORMATION
  Report Type: Spontaneous
  Country: FR (occurrence: FR)
  Receive Date: 20240304
  Receipt Date: 20240304
  Transmission Date: 20240410
  Serious: Yes (Death)
  Sender: FDA-Public Use
  Company Number: None

PATIENT
  Age: 66 Year
  Sex: Male
  Weight: 54.5 kg

DRUGS (4)
  1. PAROXETINE HYDROCHLORIDE [Interacting]
     Active Substance: PAROXETINE HYDROCHLORIDE\PAROXETINE HYDROCHLORIDE ANHYDROUS
     Indication: Depression
     Dosage: CHLORHYDRATE DE PAROXETINE ANHYDRE
     Route: 048
     Dates: end: 20231222
  2. PAROXETINE HYDROCHLORIDE [Interacting]
     Active Substance: PAROXETINE HYDROCHLORIDE\PAROXETINE HYDROCHLORIDE ANHYDROUS
     Indication: Depression
     Dosage: CHLORHYDRATE DE PAROXETINE ANHYDRE
     Route: 048
     Dates: start: 20231222, end: 20231226
  3. TRAZODONE HYDROCHLORIDE [Suspect]
     Active Substance: TRAZODONE HYDROCHLORIDE
     Indication: Behaviour disorder
     Dosage: 50 MG/DAY FOR 7 DAYS THEN PLANNED INCREASE/ CHLORHYDRATE DE TRAZODONE
     Route: 048
     Dates: start: 20231222, end: 20231225
  4. RISPERDAL [Interacting]
     Active Substance: RISPERIDONE
     Indication: Behaviour disorder
     Route: 048
     Dates: end: 20231225

REACTIONS (1)
  - Sudden death [Fatal]

NARRATIVE: CASE EVENT DATE: 20231226
